FAERS Safety Report 5274010-9 (Version None)
Quarter: 2007Q1

REPORT INFORMATION
  Report Type: 
  Country: None (occurrence: None)
  Receive Date: 20070323
  Receipt Date: 20070314
  Transmission Date: 20070707
  Serious: Yes (Other)
  Sender: FDA-Public Use
  Company Number: FR-GLAXOSMITHKLINE-B0463023A

PATIENT
  Age: 51 Year
  Sex: Male

DRUGS (6)
  1. ZIDOVUDINE [Suspect]
     Indication: HIV INFECTION
     Route: 065
  2. LAMIVUDINE [Suspect]
     Indication: HIV INFECTION
     Route: 065
  3. FOSAMPRENAVIR [Suspect]
     Indication: HIV INFECTION
     Route: 065
  4. RITONAVIR [Suspect]
     Indication: HIV INFECTION
     Route: 065
  5. MOXIFLOXACIN HCL [Suspect]
     Route: 065
  6. TRIMETHOPRIM-SULFAMETHOXAZOLE [Concomitant]
     Indication: PNEUMOCYSTIS JIROVECI INFECTION
     Route: 065

REACTIONS (18)
  - BLOOD CREATININE INCREASED [None]
  - C-REACTIVE PROTEIN INCREASED [None]
  - CHOLESTASIS [None]
  - DISSEMINATED TUBERCULOSIS [None]
  - DRUG TOXICITY [None]
  - GRANULOMATOUS LIVER DISEASE [None]
  - HAEMATURIA [None]
  - HEPATIC FUNCTION ABNORMAL [None]
  - IMMUNE RECONSTITUTION SYNDROME [None]
  - LEUKOCYTURIA [None]
  - LYMPHADENOPATHY [None]
  - NEPHRITIS INTERSTITIAL [None]
  - PROTEINURIA [None]
  - PYREXIA [None]
  - SARCOIDOSIS [None]
  - SKIN LESION [None]
  - SPLENOMEGALY [None]
  - WEIGHT DECREASED [None]
